FAERS Safety Report 4535885-1 (Version None)
Quarter: 2004Q4

REPORT INFORMATION
  Report Type: 
  Country: None (occurrence: None)
  Receive Date: 20041223
  Receipt Date: 20041102
  Transmission Date: 20050328
  Serious: Yes (Hospitalization, Other)
  Sender: FDA-Public Use
  Company Number: PHBS2004JP14760

PATIENT
  Age: 71 Year
  Sex: Male

DRUGS (5)
  1. CEPHARANTHIN [Concomitant]
     Dates: end: 20041001
  2. GASLON [Concomitant]
  3. COIX SEED EXTRACT [Concomitant]
     Dates: end: 20041001
  4. NEORAL [Suspect]
     Indication: PSORIASIS
     Dosage: 50 MG/D
     Route: 048
     Dates: start: 20041104, end: 20040101
  5. NEORAL [Suspect]
     Dosage: 200 MG/D
     Route: 048
     Dates: start: 20001101, end: 20041031

REACTIONS (4)
  - EOSINOPHIL COUNT INCREASED [None]
  - LYMPHOMA [None]
  - WEIGHT DECREASED [None]
  - WHITE BLOOD CELL COUNT INCREASED [None]
